FAERS Safety Report 6758914-3 (Version None)
Quarter: 2010Q2

REPORT INFORMATION
  Report Type: 
  Country: None (occurrence: None)
  Receive Date: 20100607
  Receipt Date: 20100531
  Transmission Date: 20101027
  Serious: Yes (Hospitalization)
  Sender: FDA-Public Use
  Company Number: PHHO2010ES07143

PATIENT
  Sex: Male

DRUGS (6)
  1. AFINITOR [Suspect]
     Dosage: 10 MG, UNK
     Route: 048
     Dates: start: 20100216, end: 20100427
  2. ACETYLSALICYLIC ACID [Concomitant]
     Indication: CARDIOVASCULAR EVENT PROPHYLAXIS
  3. CLOPIDOGREL [Concomitant]
     Indication: CARDIAC FAILURE CONGESTIVE
  4. DILTIAZEM [Concomitant]
     Indication: CARDIAC FAILURE CONGESTIVE
  5. DIGOXIN [Concomitant]
  6. VERAPAMIL [Concomitant]

REACTIONS (6)
  - CARDIOMEGALY [None]
  - COUGH [None]
  - DYSPNOEA [None]
  - LUNG INFILTRATION [None]
  - PLEURAL EFFUSION [None]
  - PNEUMONITIS [None]
